FAERS Safety Report 25420254 (Version 2)
Quarter: 2025Q2

REPORT INFORMATION
  Report Type: Spontaneous
  Country: ES (occurrence: ES)
  Receive Date: 20250610
  Receipt Date: 20250619
  Transmission Date: 20250716
  Serious: Yes (Other)
  Sender: UCB
  Company Number: ES-UCBSA-2025033586

PATIENT
  Sex: Male

DRUGS (1)
  1. BIMZELX [Suspect]
     Active Substance: BIMEKIZUMAB-BKZX
     Indication: Hidradenitis
     Dates: start: 202504

REACTIONS (4)
  - Epilepsy [Recovering/Resolving]
  - Haemorrhage intracranial [Recovering/Resolving]
  - Neurosurgery [Recovering/Resolving]
  - Angiopathy [Recovering/Resolving]

NARRATIVE: CASE EVENT DATE: 20250101
